FAERS Safety Report 7631472-7 (Version None)
Quarter: 2011Q3

REPORT INFORMATION
  Report Type: 
  Country: None (occurrence: None)
  Receive Date: 20110725
  Receipt Date: 20110711
  Transmission Date: 20111222
  Serious: Yes (Other)
  Sender: FDA-Public Use
  Company Number: PHHY2011US62247

PATIENT
  Age: 70 Year
  Sex: Male

DRUGS (7)
  1. HYDRALAZINE HCL [Suspect]
  2. FERROUS SULFATE TAB [Concomitant]
  3. COLCHICINE [Concomitant]
  4. PREDNISONE [Concomitant]
  5. ALLOPURINOL [Concomitant]
  6. SIROLIMUS [Concomitant]
  7. MYCOPHENOLATE MOFETIL [Concomitant]

REACTIONS (2)
  - GASTROINTESTINAL TRACT MUCOSAL PIGMENTATION [None]
  - ANAEMIA [None]
